FAERS Safety Report 10045718 (Version 2)
Quarter: 2014Q1

REPORT INFORMATION
  Report Type: Report from Study
  Country: VE (occurrence: VE)
  Receive Date: 20140328
  Receipt Date: 20140328
  Transmission Date: 20141002
  Serious: Yes (Other)
  Sender: FDA-Public Use
  Company Number: VE-ABBVIE-14P-178-1192498-00

PATIENT
  Age: 28 Year
  Sex: Female

DRUGS (4)
  1. HUMIRA [Suspect]
     Indication: PSORIASIS
     Route: 058
     Dates: start: 2011, end: 201207
  2. HUMIRA [Suspect]
     Route: 058
     Dates: start: 201310, end: 20131217
  3. CICLOSPORINA [Concomitant]
     Indication: PSORIASIS
     Route: 048
  4. METHOTREXATE [Concomitant]
     Indication: PSORIASIS
     Route: 048

REACTIONS (2)
  - Adrenal insufficiency [Recovering/Resolving]
  - Acute pulmonary histoplasmosis [Recovered/Resolved]
